FAERS Safety Report 10185999 (Version 1)
Quarter: 2014Q2

REPORT INFORMATION
  Report Type: Spontaneous
  Country: US (occurrence: US)
  Receive Date: 20140521
  Receipt Date: 20140521
  Transmission Date: 20141212
  Serious: Yes (Other)
  Sender: FDA-Public Use
  Company Number: US-AMGEN-USASP2014035760

PATIENT
  Age: 72 Year
  Sex: Female

DRUGS (5)
  1. PROLIA [Suspect]
     Indication: OSTEOPOROSIS POSTMENOPAUSAL
     Route: 065
  2. PLAVIX [Concomitant]
  3. SYNTHROID [Concomitant]
  4. BABY ASPIRIN [Concomitant]
  5. CALTRATE                           /00944201/ [Concomitant]

REACTIONS (4)
  - Skin cancer [Unknown]
  - Hypersensitivity [Unknown]
  - Lymphoedema [Unknown]
  - Eye swelling [Unknown]
